FAERS Safety Report 9180501 (Version 1)
Quarter: 2013Q1

REPORT INFORMATION
  Report Type: Spontaneous
  Country: US (occurrence: None)
  Receive Date: 20130320
  Receipt Date: 20130320
  Transmission Date: 20140127
  Serious: Yes (Other)
  Sender: FDA-Public Use
  Company Number: AMAG201300043

PATIENT
  Age: 82 Year
  Sex: Female
  Weight: 82.5 kg

DRUGS (17)
  1. FERAHEME [Suspect]
     Route: 042
     Dates: start: 20130228, end: 20130228
  2. ATENOLOL (ATENOLOL) [Concomitant]
  3. FERROUS SULFATE (FERROUS SULFATE) [Concomitant]
  4. FUROSEMIDE (FUROSEMIDE) [Concomitant]
  5. GLYBURIDE (GLYBURIDE) [Concomitant]
  6. MICARDIS (TELMISARTAN) [Concomitant]
  7. MULTIVITAMIN (VITAMINS NOS) [Concomitant]
  8. NIACIN (NIACIN) [Concomitant]
  9. OMEPRAZOLE (OMEPRAZOLE) [Concomitant]
  10. PRAVASTATIN (PRAVASTATIN) [Concomitant]
  11. VITAMIN C [Concomitant]
  12. VITAMIN D (COLECALCIFEROL) [Concomitant]
  13. ZETIA (EZETIMIBE) [Concomitant]
  14. KEFLEX (CEFALEXIN MONOHYDRATE) [Concomitant]
  15. PHENERGAN WITH CODEINE (CEPHAELIS SPP. FLUID EXTRACT, CHLOROFORM, CITRIC ACID, CODEINE PHOSPHATE, PROMETHAZINE HYDROCHLORIDE, SODIUM CITRATE, SULFOGAIACOL) [Concomitant]
  16. RED BLOOD CELLS, CONCENTRATED (RED BLOOD CELLS, CONCENTRATED) [Concomitant]
  17. TESSALON PERLE (BENZONATATE) [Concomitant]

REACTIONS (7)
  - Infusion related reaction [None]
  - Chest discomfort [None]
  - Nausea [None]
  - Vomiting [None]
  - Blood pressure immeasurable [None]
  - Oxygen saturation decreased [None]
  - Dyspnoea [None]
